FAERS Safety Report 7824517-2 (Version None)
Quarter: 2011Q4

REPORT INFORMATION
  Report Type: 
  Country: None (occurrence: None)
  Receive Date: 20111019
  Receipt Date: 20111004
  Transmission Date: 20120403
  Serious: Yes (Hospitalization, Other)
  Sender: FDA-Public Use
  Company Number: US-BAYER-2011-013896

PATIENT
  Age: 41 Year
  Sex: Female
  Weight: 58.957 kg

DRUGS (15)
  1. CIPROFLOXACIN [Concomitant]
     Dosage: UNK
     Dates: start: 20040101, end: 20100101
  2. NEBIVOLOL HCL [Concomitant]
  3. YASMIN [Suspect]
     Indication: CONTRACEPTION
     Dosage: UNK
     Route: 048
     Dates: start: 20050101, end: 20090101
  4. AZITHROMYCIN [Concomitant]
     Dosage: UNK
     Dates: start: 20040101, end: 20100101
  5. CEPHALEXIN [Concomitant]
     Dosage: UNK
     Dates: start: 20040101, end: 20100101
  6. FLUCONAZOLE [Concomitant]
     Dosage: 150 MG, UNK
     Dates: start: 20081201
  7. AUGMENTIN '125' [Concomitant]
     Dosage: UNK
     Dates: start: 20081201
  8. VERAMYST [Concomitant]
     Dosage: 27.5 UNK, UNK
     Route: 045
     Dates: start: 20081201
  9. ERYTHROMYCIN [Concomitant]
     Dosage: UNK
     Dates: start: 20040101, end: 20100101
  10. PHENERGAN HCL [Concomitant]
  11. DROSPIRENONE AND ETHINYL ESTRADIOL [Suspect]
     Dosage: UNK
     Route: 048
     Dates: start: 20080801, end: 20080901
  12. DILAUDID [Concomitant]
  13. LEVAQUIN [Concomitant]
     Dosage: 500 MG, UNK
     Dates: start: 20081201
  14. NITROFURANTOIN [Concomitant]
     Dosage: UNK
     Dates: start: 20040101, end: 20100101
  15. NEXIUM [Concomitant]

REACTIONS (6)
  - GALLBLADDER INJURY [None]
  - GALLBLADDER CHOLESTEROLOSIS [None]
  - THROMBOSIS [None]
  - PAIN [None]
  - CHOLECYSTITIS CHRONIC [None]
  - PANCREATITIS [None]
